FAERS Safety Report 10088020 (Version 1)
Quarter: 2014Q2

REPORT INFORMATION
  Report Type: Spontaneous
  Country: US (occurrence: US)
  Receive Date: 20140420
  Receipt Date: 20140420
  Transmission Date: 20141212
  Serious: No
  Sender: FDA-Public Use
  Company Number: US-009507513-1404USA010239

PATIENT
  Age: 54 Year
  Sex: Male

DRUGS (4)
  1. JANUVIA [Suspect]
     Indication: BLOOD GLUCOSE
     Dosage: UNK, QD
     Route: 048
     Dates: start: 201202
  2. OXYCODONE [Concomitant]
  3. VALIUM [Concomitant]
  4. CYMBALTA [Concomitant]

REACTIONS (1)
  - Hypoaesthesia [Unknown]
